FAERS Safety Report 11842670 (Version 5)
Quarter: 2015Q4

REPORT INFORMATION
  Report Type: Spontaneous
  Country: ES (occurrence: ES)
  Receive Date: 20151216
  Receipt Date: 20151230
  Transmission Date: 20160305
  Serious: Yes (Hospitalization, Other)
  Sender: FDA-Public Use
  Company Number: ES-PFIZER INC-2015449406

PATIENT
  Age: 74 Year
  Sex: Female

DRUGS (19)
  1. BISOPROLOL FUMARATE. [Interacting]
     Active Substance: BISOPROLOL FUMARATE
     Dosage: 5 MG, DAILY
     Route: 065
  2. DILTIAZEM HCL [Interacting]
     Active Substance: DILTIAZEM HYDROCHLORIDE
     Dosage: 120 MG, DAILY
     Route: 065
  3. CLOBETASOL [Interacting]
     Active Substance: CLOBETASOL
     Dosage: UNK
     Route: 061
  4. INSULIN [Interacting]
     Active Substance: INSULIN NOS
     Dosage: 100 IU, DAILY
     Route: 065
  5. ALPRAZOLAM. [Interacting]
     Active Substance: ALPRAZOLAM
     Indication: DISORIENTATION
  6. HYDROCHLOROTHIAZIDE. [Interacting]
     Active Substance: HYDROCHLOROTHIAZIDE
     Dosage: 25 MG, DAILY
     Route: 065
  7. HYDROCORTISONE. [Interacting]
     Active Substance: HYDROCORTISONE
     Indication: ERYTHRODERMIC PSORIASIS
     Dosage: UNK
     Route: 061
  8. CLORAZEPATE [Interacting]
     Active Substance: CLORAZEPATE DIPOTASSIUM
     Dosage: 5 MG, DAILY
     Route: 065
  9. DIGOXIN. [Interacting]
     Active Substance: DIGOXIN
     Dosage: 0.125 MG, DAILY
     Route: 065
  10. ALPRAZOLAM. [Suspect]
     Active Substance: ALPRAZOLAM
     Indication: EUPHORIC MOOD
     Dosage: UNK
     Route: 065
  11. ENOXAPARIN [Interacting]
     Active Substance: ENOXAPARIN
     Dosage: 40 MG, DAILY
     Route: 065
  12. FUROSEMIDE. [Interacting]
     Active Substance: FUROSEMIDE
     Dosage: 60 MG, DAILY
     Route: 065
  13. PREDNISONE. [Interacting]
     Active Substance: PREDNISONE
     Indication: ERYTHRODERMIC PSORIASIS
     Dosage: 0.5 MG/KG, DAILY
     Route: 048
  14. METHOTREXATE SODIUM. [Interacting]
     Active Substance: METHOTREXATE SODIUM
     Dosage: 2.5 MG, WEEKLY
     Route: 065
  15. RAMIPRIL. [Interacting]
     Active Substance: RAMIPRIL
     Dosage: 5 MG, DAILY
     Route: 065
  16. METHYLPREDNISOLONE ACEPONATE [Interacting]
     Active Substance: METHYLPREDNISOLONE ACEPONATE
     Dosage: UNK
     Route: 061
  17. ACENOCOUMAROL [Interacting]
     Active Substance: ACENOCOUMAROL
     Dosage: 1 MG, DAILY
     Route: 065
  18. FOLIC ACID. [Interacting]
     Active Substance: FOLIC ACID
     Dosage: 5 MG, WEEKLY
     Route: 065
  19. OMEPRAZOLE. [Interacting]
     Active Substance: OMEPRAZOLE
     Dosage: 20 MG, DAILY
     Route: 065

REACTIONS (10)
  - Drug interaction [Unknown]
  - Erythrodermic psoriasis [Recovering/Resolving]
  - Transaminases increased [Recovering/Resolving]
  - Disorientation [Unknown]
  - Euphoric mood [Unknown]
  - Toxicity to various agents [Recovering/Resolving]
  - Stupor [Unknown]
  - Condition aggravated [Recovering/Resolving]
  - Erythema [Recovering/Resolving]
  - Somnolence [Unknown]
